FAERS Safety Report 22018572 (Version 2)
Quarter: 2023Q1

REPORT INFORMATION
  Report Type: Spontaneous
  Country: CA (occurrence: CA)
  Receive Date: 20230222
  Receipt Date: 20230301
  Transmission Date: 20230418
  Serious: Yes (Other)
  Sender: FDA-Public Use
  Company Number: CA-CELLTRION INC.-2022CA017643

PATIENT

DRUGS (4)
  1. INFLECTRA [Suspect]
     Active Substance: INFLIXIMAB-DYYB
     Indication: Granuloma annulare
     Dosage: 270 MG, WEEK 0,2,6 THEN Q 4 WEEKS
     Route: 042
     Dates: start: 20221107
  2. INFLECTRA [Suspect]
     Active Substance: INFLIXIMAB-DYYB
     Dosage: 270 MG, WEEK 0,2,6 THEN Q 4 WEEKS
     Route: 042
     Dates: start: 20230116
  3. METHOTREXATE [Concomitant]
     Active Substance: METHOTREXATE
     Indication: Granuloma annulare
     Dosage: 1 DF, DOSAGE NOT AVAILABLE
     Route: 065
  4. TYLENOL [Concomitant]
     Active Substance: ACETAMINOPHEN
     Dosage: 1 DF, DOSAGE NOT AVAILABLE
     Route: 065

REACTIONS (9)
  - Rash [Recovering/Resolving]
  - Off label use [Unknown]
  - Wound secretion [Not Recovered/Not Resolved]
  - Weight increased [Unknown]
  - Erythema [Not Recovered/Not Resolved]
  - Wound [Recovering/Resolving]
  - Pruritus [Not Recovered/Not Resolved]
  - Skin lesion [Recovering/Resolving]
  - Eczema [Recovering/Resolving]

NARRATIVE: CASE EVENT DATE: 20221107
